FAERS Safety Report 6383973-X (Version None)
Quarter: 2009Q3

REPORT INFORMATION
  Report Type: 
  Country: None (occurrence: None)
  Receive Date: 20090928
  Receipt Date: 20090922
  Transmission Date: 20100115
  Serious: No
  Sender: FDA-Public Use
  Company Number: 20097435

PATIENT
  Sex: 0

DRUGS (1)
  1. LIORESAL [Suspect]
     Indication: MUSCLE SPASTICITY
     Dosage: MCG, DAILY, INTRATHECAL
     Route: 037

REACTIONS (8)
  - ASTHENIA [None]
  - CATHETER RELATED COMPLICATION [None]
  - COORDINATION ABNORMAL [None]
  - DECREASED ACTIVITY [None]
  - IMPAIRED DRIVING ABILITY [None]
  - MOBILITY DECREASED [None]
  - MOTOR DYSFUNCTION [None]
  - SLEEP DISORDER [None]
